FAERS Safety Report 22039983 (Version 1)
Quarter: 2023Q1

REPORT INFORMATION
  Report Type: Spontaneous
  Country: US (occurrence: None)
  Receive Date: 20230224
  Receipt Date: 20230224
  Transmission Date: 20230418
  Serious: Yes (Hospitalization)
  Sender: FDA-Public Use
  Company Number: None

PATIENT
  Age: 64 Year
  Sex: Male
  Weight: 94.5 kg

DRUGS (8)
  1. FARXIGA [Suspect]
     Active Substance: DAPAGLIFLOZIN PROPANEDIOL
     Dosage: OTHER QUANTITY : 1 TABLET(S);?FREQUENCY : TWICE A DAY;?
     Route: 048
     Dates: start: 20221123, end: 20221221
  2. METFORMIN [Concomitant]
  3. ENTREADIES [Concomitant]
  4. ROSIVASTATIN [Concomitant]
  5. SOTALOL [Concomitant]
  6. CLAPIDOGREL [Concomitant]
  7. ASPIRIN [Concomitant]
  8. VITAMIN D3 [Concomitant]

REACTIONS (5)
  - Gangrene [None]
  - Skin discolouration [None]
  - Skin exfoliation [None]
  - Therapy cessation [None]
  - Product label issue [None]

NARRATIVE: CASE EVENT DATE: 20221223
